FAERS Safety Report 17845737 (Version 1)
Quarter: 2020Q2

REPORT INFORMATION
  Report Type: Spontaneous
  Country: US (occurrence: US)
  Receive Date: 20200530
  Receipt Date: 20200530
  Transmission Date: 20200714
  Serious: No
  Sender: FDA-Public Use
  Company Number: None

PATIENT
  Sex: Female

DRUGS (1)
  1. HUMIRA [Suspect]
     Active Substance: ADALIMUMAB
     Indication: COLITIS ULCERATIVE
     Dosage: 160MG/DAY; THEN (80MG) DAY 15, THEN 40MG EVERY OTHER WEEK.
     Route: 058
     Dates: start: 202004

REACTIONS (2)
  - Condition aggravated [None]
  - Urticaria [None]
